FAERS Safety Report 8384628-2 (Version None)
Quarter: 2012Q2

REPORT INFORMATION
  Report Type: 
  Country: None (occurrence: None)
  Receive Date: 20120524
  Receipt Date: 20120522
  Transmission Date: 20120825
  Serious: Yes (Hospitalization)
  Sender: FDA-Public Use
  Company Number: IT-BRISTOL-MYERS SQUIBB COMPANY-16610925

PATIENT
  Age: 72 Year
  Sex: Female

DRUGS (1)
  1. BARACLUDE [Suspect]
     Indication: TRANSAMINASES INCREASED
     Dates: start: 20120521

REACTIONS (1)
  - HYPERSENSITIVITY [None]
